FAERS Safety Report 18377618 (Version 1)
Quarter: 2020Q4

REPORT INFORMATION
  Report Type: Spontaneous
  Country: CA (occurrence: CA)
  Receive Date: 20201013
  Receipt Date: 20201013
  Transmission Date: 20210114
  Serious: Yes (Other)
  Sender: FDA-Public Use
  Company Number: CA-PFIZER INC-2020078260

PATIENT
  Age: 66 Year
  Sex: Female

DRUGS (5)
  1. XELJANZ XR [Suspect]
     Active Substance: TOFACITINIB CITRATE
     Indication: RHEUMATOID ARTHRITIS
     Dosage: 11 MG, 1X/DAY
     Route: 048
     Dates: start: 20200203
  2. FISH OIL [Concomitant]
     Active Substance: FISH OIL
     Dosage: UNK
     Route: 065
  3. MAGNESIUM [Concomitant]
     Active Substance: MAGNESIUM
     Indication: CONSTIPATION
     Dosage: UNK, 2X/DAY (AM AND PM)
     Route: 065
  4. METHOTREXATE SODIUM. [Concomitant]
     Active Substance: METHOTREXATE SODIUM
     Dosage: UNK
     Route: 065
  5. LAKOTA ARTHRITIS [Concomitant]
     Dosage: UNK
     Route: 065

REACTIONS (7)
  - Condition aggravated [Recovered/Resolved]
  - Osteoarthritis [Unknown]
  - Constipation [Not Recovered/Not Resolved]
  - Haemorrhoids [Unknown]
  - Therapeutic product effect delayed [Unknown]
  - Disease recurrence [Unknown]
  - Hot flush [Unknown]
